FAERS Safety Report 7381429-9 (Version None)
Quarter: 2011Q1

REPORT INFORMATION
  Report Type: 
  Country: None (occurrence: None)
  Receive Date: 20110329
  Receipt Date: 20110318
  Transmission Date: 20110831
  Serious: Yes (Death)
  Sender: FDA-Public Use
  Company Number: US-ROCHE-737456

PATIENT
  Sex: Male

DRUGS (3)
  1. SOTRET [Suspect]
     Dosage: PATIENT WAS DISPENSED 10 MG SOTRET ON 10/3/08,2/5/08,1/7/08,12/8/08,26/9/08,26/2/09
     Route: 065
     Dates: start: 20080310
  2. ISOTRETINOIN [Suspect]
     Dosage: THE PATIENT WAS DISPENSED ACCUTANE 10 MG CAPSULE ON 15-03-2007
     Route: 065
     Dates: start: 20070315
  3. AMNESTEEM [Suspect]
     Dosage: PT WAS DISPENSED 10 MG AMNESTEEM ON 17/6/06,13/1/09,13/7/09, 19/10/09,30/11/09,1/2/10,6/4/10,22/7/10
     Route: 065
     Dates: start: 20060617

REACTIONS (1)
  - LUNG NEOPLASM MALIGNANT [None]
